FAERS Safety Report 10168971 (Version 3)
Quarter: 2015Q1

REPORT INFORMATION
  Report Type: Spontaneous
  Country: US (occurrence: None)
  Receive Date: 20140509
  Receipt Date: 20150122
  Transmission Date: 20150720
  Serious: Yes (Hospitalization)
  Sender: FDA-Public Use
  Company Number: UTC-048196

PATIENT
  Age: 57 Year
  Sex: Male

DRUGS (4)
  1. LETAIRIS (AMBRISENTAN) UNKNOWN [Concomitant]
  2. REMODULIN [Suspect]
     Active Substance: TREPROSTINIL
     Indication: COR PULMONALE CHRONIC
     Dosage: 0.046 UG/KG, CONTINUING, SUBCUTANEOUS
     Route: 058
     Dates: start: 20130425
  3. ADCIRCA (TADALAFIL) UNKNOWN [Concomitant]
  4. REVATIO (SILDENAFIL CITRATE) [Concomitant]

REACTIONS (2)
  - Fluid overload [None]
  - Right ventricular failure [None]
